FAERS Safety Report 12266389 (Version 1)
Quarter: 2016Q2

REPORT INFORMATION
  Report Type: Spontaneous
  Country: NO (occurrence: NO)
  Receive Date: 20160414
  Receipt Date: 20160414
  Transmission Date: 20160815
  Serious: Yes (Other)
  Sender: FDA-Public Use
  Company Number: NO-HOSPIRA-3241271

PATIENT
  Sex: Male

DRUGS (4)
  1. CALCIUM FOLINATE [Suspect]
     Active Substance: LEUCOVORIN CALCIUM
     Indication: RECTAL CANCER
     Route: 065
  2. AVASTIN                            /00848101/ [Suspect]
     Active Substance: SIMVASTATIN
     Indication: RECTAL CANCER
     Route: 042
  3. IRINOTECAN HYDROCHLORIDE. [Suspect]
     Active Substance: IRINOTECAN HYDROCHLORIDE
     Indication: RECTAL CANCER
     Route: 065
  4. FLUOROURACIL. [Suspect]
     Active Substance: FLUOROURACIL
     Indication: RECTAL CANCER
     Route: 065

REACTIONS (2)
  - Tumour haemorrhage [Unknown]
  - Embolism venous [Recovered/Resolved]
